FAERS Safety Report 16821557 (Version 2)
Quarter: 2020Q1

REPORT INFORMATION
  Report Type: Spontaneous
  Country: JP (occurrence: JP)
  Receive Date: 20190918
  Receipt Date: 20200127
  Transmission Date: 20200409
  Serious: Yes (Death)
  Sender: FDA-Public Use
  Company Number: JP-PFIZER INC-2019123013

PATIENT
  Age: 86 Year
  Sex: Female

DRUGS (1)
  1. LYRICA [Suspect]
     Active Substance: PREGABALIN
     Dosage: UNK
     Route: 048

REACTIONS (3)
  - Hyperaesthesia [Fatal]
  - Pain [Fatal]
  - Paraesthesia [Fatal]

NARRATIVE: CASE EVENT DATE: 20190320
